FAERS Safety Report 25518092 (Version 1)
Quarter: 2025Q3

REPORT INFORMATION
  Report Type: Spontaneous
  Country: JP (occurrence: JP)
  Receive Date: 20250704
  Receipt Date: 20250704
  Transmission Date: 20251021
  Serious: Yes (Death, Hospitalization)
  Sender: AMGEN
  Company Number: JP-BEH-2025210773

PATIENT
  Age: 9 Decade
  Sex: Male

DRUGS (1)
  1. TAVNEOS [Suspect]
     Active Substance: AVACOPAN
     Indication: Anti-neutrophil cytoplasmic antibody positive vasculitis
     Route: 048
     Dates: start: 202501, end: 202503

REACTIONS (2)
  - Cholestasis [Recovered/Resolved]
  - Anti-neutrophil cytoplasmic antibody positive vasculitis [Fatal]

NARRATIVE: CASE EVENT DATE: 20250301
